FAERS Safety Report 8488972 (Version 2)
Quarter: 2013Q1

REPORT INFORMATION
  Report Type: Report from Study
  Country: US (occurrence: US)
  Receive Date: 20120402
  Receipt Date: 20130304
  Transmission Date: 20140127
  Serious: Yes (Other)
  Sender: FDA-Public Use
  Company Number: US-ABBOTT-12P-163-0898857-00

PATIENT
  Age: 50 None
  Sex: Male
  Weight: 107.6 kg

DRUGS (4)
  1. ANDROGEL 1% [Suspect]
     Indication: BLOOD TESTOSTERONE DECREASED
     Dosage: 4 PUMPS PER DAY
  2. VYTORIN [Concomitant]
     Indication: BLOOD CHOLESTEROL
  3. SULFAMETHAXAZOLE [Concomitant]
     Indication: INFECTION PROPHYLAXIS
  4. SULFAMETHAXAZOLE [Concomitant]
     Indication: FURUNCLE

REACTIONS (2)
  - Prostate cancer [Unknown]
  - Prostatic specific antigen increased [Unknown]
